FAERS Safety Report 8580123-6 (Version None)
Quarter: 2012Q3

REPORT INFORMATION
  Report Type: 
  Country: None (occurrence: None)
  Receive Date: 20120808
  Receipt Date: 20120802
  Transmission Date: 20120928
  Serious: Yes (Other)
  Sender: FDA-Public Use
  Company Number: US-PFIZER INC-2012148903

PATIENT
  Sex: Female

DRUGS (10)
  1. LYRICA [Suspect]
     Indication: FIBROMYALGIA
  2. VITAMIN D [Concomitant]
     Dosage: UNK
  3. LYRICA [Suspect]
     Indication: PAIN IN EXTREMITY
  4. CELEBREX [Concomitant]
     Indication: RHEUMATOID ARTHRITIS
     Dosage: UNK
  5. MULTI-VITAMINS [Concomitant]
     Dosage: UNK
  6. PLAQUENIL [Concomitant]
     Indication: SYSTEMIC LUPUS ERYTHEMATOSUS
     Dosage: UNK
  7. PREDNISONE [Concomitant]
     Indication: RHEUMATOID ARTHRITIS
     Dosage: UNK
  8. LYRICA [Suspect]
     Indication: MYALGIA
     Dosage: 75 MG, 2X/DAY
     Route: 048
     Dates: start: 20120515, end: 20120501
  9. METHOTREXATE [Concomitant]
     Indication: RHEUMATOID ARTHRITIS
     Dosage: UNK
  10. METHIMAZOLE [Concomitant]
     Indication: HYPERTHYROIDISM
     Dosage: UNK

REACTIONS (8)
  - BURNING SENSATION [None]
  - ERYTHEMA [None]
  - INTERVERTEBRAL DISC PROTRUSION [None]
  - OEDEMA PERIPHERAL [None]
  - ANGER [None]
  - SKIN TIGHTNESS [None]
  - PAIN IN EXTREMITY [None]
  - INSOMNIA [None]
